FAERS Safety Report 9431562 (Version 1)
Quarter: 2013Q3

REPORT INFORMATION
  Report Type: Report from Study
  Country: CN (occurrence: CN)
  Receive Date: 20130731
  Receipt Date: 20130731
  Transmission Date: 20140515
  Serious: Yes (Other)
  Sender: FDA-Public Use
  Company Number: CN-ROCHE-1254909

PATIENT
  Age: 58 Year
  Sex: Male

DRUGS (4)
  1. PEGASYS [Suspect]
     Indication: HEPATITIS C
     Route: 058
     Dates: start: 200912, end: 201105
  2. PEGASYS [Suspect]
     Route: 058
     Dates: start: 201109, end: 201304
  3. RIBAVIRIN [Concomitant]
     Indication: HEPATITIS C
     Dosage: 6 DOSE FORMS PER DAY
     Route: 048
     Dates: start: 200912, end: 201105
  4. RIBAVIRIN [Concomitant]
     Dosage: 6 DOSE FORMS PER DAY
     Route: 048
     Dates: start: 201109, end: 201304

REACTIONS (1)
  - Hepatitis C [Unknown]
